FAERS Safety Report 23923308 (Version 3)
Quarter: 2024Q2

REPORT INFORMATION
  Report Type: Report from Study
  Country: CA (occurrence: CA)
  Receive Date: 20240531
  Receipt Date: 20240627
  Transmission Date: 20240715
  Serious: Yes (Hospitalization, Other)
  Sender: FDA-Public Use
  Company Number: CA-MIRUM PHARMACEUTICALS INTERNATIONAL B.V.-CA-MIR-23-00654

PATIENT

DRUGS (6)
  1. LIVMARLI [Suspect]
     Active Substance: MARALIXIBAT CHLORIDE
     Indication: Cholestasis of pregnancy
     Dosage: 1.75 MILLILITER, QD
     Route: 048
     Dates: start: 202311, end: 20231113
  2. LIVMARLI [Suspect]
     Active Substance: MARALIXIBAT CHLORIDE
     Dosage: 0.9 MILLILITER, QD
     Route: 048
     Dates: start: 20231028
  3. LIVMARLI [Suspect]
     Active Substance: MARALIXIBAT CHLORIDE
     Dosage: 0.4 MILLILITER, QD
     Route: 048
     Dates: start: 20231008, end: 20231027
  4. URSODIOL [Concomitant]
     Active Substance: URSODIOL
     Indication: Cholelithiasis
     Dosage: 1000 MILLIGRAM, BID
     Route: 065
  5. URSODIOL [Concomitant]
     Active Substance: URSODIOL
     Dosage: 1000 MILLIGRAM, QD
     Route: 048
  6. MINERALS\VITAMINS [Concomitant]
     Active Substance: MINERALS\VITAMINS
     Indication: Vitamin supplementation
     Dosage: UNK, UNK
     Route: 048

REACTIONS (15)
  - Hepatic enzyme increased [Recovered/Resolved]
  - Pericarditis [Recovered/Resolved]
  - Caesarean section [Recovered/Resolved]
  - Premature labour [Recovered/Resolved]
  - Hepatic enzyme increased [Recovered/Resolved]
  - Bile acids increased [Recovered/Resolved]
  - Pruritus [Recovered/Resolved]
  - Arthralgia [Recovered/Resolved]
  - Faeces pale [Recovered/Resolved]
  - Chromaturia [Recovered/Resolved]
  - Malaise [Recovered/Resolved]
  - Vomiting [Recovered/Resolved]
  - Maternal exposure during pregnancy [Unknown]
  - Product use in unapproved indication [Unknown]
  - Drug ineffective [Unknown]

NARRATIVE: CASE EVENT DATE: 20230101
